FAERS Safety Report 8128122-2 (Version None)
Quarter: 2012Q1

REPORT INFORMATION
  Report Type: 
  Country: None (occurrence: None)
  Receive Date: 20120210
  Receipt Date: 20120202
  Transmission Date: 20120608
  Serious: Yes (Hospitalization, Other)
  Sender: FDA-Public Use
  Company Number: FR-NOVOPROD-339239

PATIENT
  Age: 61 Year
  Sex: Female

DRUGS (13)
  1. METFORMIN HYDROCHLORIDE [Concomitant]
  2. ATENOLOL [Concomitant]
     Indication: GLAUCOMA
     Dosage: 50 MG, QD
     Route: 048
     Dates: start: 20080925
  3. GLUCOPHAGE [Concomitant]
     Indication: DIABETES MELLITUS
     Dosage: 3 G, QD
     Route: 048
     Dates: start: 20080208
  4. IRBESARTAN [Concomitant]
     Indication: HYPERTENSION
     Dosage: UNK
     Dates: start: 20080208, end: 20081102
  5. CROMABAK [Concomitant]
     Indication: CONJUNCTIVITIS ALLERGIC
     Dosage: FROM 2 TO 6 DROPS
     Dates: start: 20111114
  6. VICTOZA [Suspect]
     Indication: TYPE 2 DIABETES MELLITUS
     Dosage: 0.6 MG, QD
     Route: 058
     Dates: start: 20101206
  7. DIAMICRON [Concomitant]
     Indication: DIABETES MELLITUS
     Dosage: FROM 1 TO 4 TABLETS
     Route: 048
     Dates: start: 20111102
  8. VICTOZA [Suspect]
     Dosage: 1.8 MG, QD
     Route: 058
     Dates: end: 20111102
  9. LEVEMIR [Concomitant]
     Indication: DIABETES MELLITUS
     Dosage: 16 IU, QD
     Route: 058
     Dates: start: 20080208, end: 20111102
  10. LEVOTHYROXINE SODIUM [Concomitant]
     Indication: HYPOTHYROIDISM
     Dosage: 50 MG, QD
     Route: 048
  11. REPAGLINIDE [Concomitant]
     Indication: DIABETES MELLITUS
     Dosage: 6 MG, QD
     Route: 048
     Dates: start: 20080208, end: 20110111
  12. FENOFIBRATE [Concomitant]
     Indication: HYPERCHOLESTEROLAEMIA
     Dosage: 160 MG, QD
     Route: 048
     Dates: start: 20080925
  13. COSOPT [Concomitant]
     Indication: GLAUCOMA
     Dosage: 1 DROP
     Dates: start: 20111114

REACTIONS (1)
  - COLORECTAL CANCER METASTATIC [None]
